FAERS Safety Report 13294005 (Version 1)
Quarter: 2017Q1

REPORT INFORMATION
  Report Type: Report from Study
  Country: US (occurrence: US)
  Receive Date: 20170303
  Receipt Date: 20170303
  Transmission Date: 20170428
  Serious: Yes (Hospitalization)
  Sender: FDA-Public Use
  Company Number: US-ASTRAZENECA-2017SE21548

PATIENT
  Sex: Female
  Weight: 116.3 kg

DRUGS (28)
  1. MAGNESIUM OXIDE. [Concomitant]
     Active Substance: MAGNESIUM OXIDE
     Route: 048
     Dates: start: 20150721
  2. THERAGRAN [Concomitant]
     Active Substance: VITAMINS
     Route: 048
     Dates: start: 20150721
  3. ZOFRAN [Concomitant]
     Active Substance: ONDANSETRON HYDROCHLORIDE
     Indication: NAUSEA
     Dosage: 1.0DF EVERY 8 - 12 HOURS
     Route: 048
     Dates: start: 20160419
  4. VESICARE [Concomitant]
     Active Substance: SOLIFENACIN SUCCINATE
     Indication: CONSTIPATION
     Route: 048
     Dates: start: 20150721
  5. AZD2281 [Suspect]
     Active Substance: OLAPARIB
     Indication: OVARIAN CANCER
     Dosage: 3 TABS
     Route: 048
  6. AZD5363 [Suspect]
     Active Substance: INVESTIGATIONAL PRODUCT
     Indication: FALLOPIAN TUBE CANCER
     Dosage: 2 TABS
     Route: 048
  7. AZD5363 [Suspect]
     Active Substance: INVESTIGATIONAL PRODUCT
     Indication: MALIGNANT PERITONEAL NEOPLASM
     Dosage: 2 TABS
     Route: 048
  8. ZOFRAN [Concomitant]
     Active Substance: ONDANSETRON HYDROCHLORIDE
     Indication: VOMITING
     Dosage: 1.0DF EVERY 8 - 12 HOURS
     Route: 048
     Dates: start: 20160419
  9. TENORMIN [Concomitant]
     Active Substance: ATENOLOL
     Route: 048
     Dates: start: 20170124
  10. EMLA [Concomitant]
     Active Substance: LIDOCAINE\PRILOCAINE
     Dosage: 2.5 PERCENT AS DIRECTED
     Route: 061
     Dates: start: 20161201
  11. AZD2281 [Suspect]
     Active Substance: OLAPARIB
     Indication: FALLOPIAN TUBE CANCER
     Dosage: 3 TABS
     Route: 048
  12. AZD2281 [Suspect]
     Active Substance: OLAPARIB
     Indication: TRIPLE NEGATIVE BREAST CANCER
     Dosage: 3 TABS
     Route: 048
  13. NORCO [Concomitant]
     Active Substance: ACETAMINOPHEN\HYDROCODONE BITARTRATE
     Dosage: 1.0DF AS REQUIRED
     Route: 048
  14. COMPAZINE [Concomitant]
     Active Substance: PROCHLORPERAZINE MALEATE
     Indication: VOMITING
     Dosage: 1.0DF EVERY 4 - 6 HOURS
     Route: 048
  15. AZD2281 [Suspect]
     Active Substance: OLAPARIB
     Indication: MALIGNANT PERITONEAL NEOPLASM
     Dosage: 3 TABS
     Route: 048
  16. AZD5363 [Suspect]
     Active Substance: INVESTIGATIONAL PRODUCT
     Indication: TRIPLE NEGATIVE BREAST CANCER
     Dosage: 2 TABS
     Route: 048
  17. AZD5363 [Suspect]
     Active Substance: INVESTIGATIONAL PRODUCT
     Indication: ENDOMETRIAL CANCER
     Dosage: 2 TABS
     Route: 048
  18. ASPIRIN. [Concomitant]
     Active Substance: ASPIRIN
     Route: 048
     Dates: start: 20150721
  19. CELEXA [Concomitant]
     Active Substance: CITALOPRAM HYDROBROMIDE
     Route: 048
     Dates: start: 20170124
  20. SYNTHROID [Concomitant]
     Active Substance: LEVOTHYROXINE SODIUM
     Route: 048
  21. COZAAR [Concomitant]
     Active Substance: LOSARTAN POTASSIUM
     Route: 048
  22. SENOKOT-S [Concomitant]
     Active Substance: DOCUSATE SODIUM\SENNOSIDES
     Indication: CONSTIPATION
     Dosage: 8.6 -50 MG BID
     Route: 048
  23. AZD2281 [Suspect]
     Active Substance: OLAPARIB
     Indication: ENDOMETRIAL CANCER
     Dosage: 3 TABS
     Route: 048
  24. TYLENOL [Concomitant]
     Active Substance: ACETAMINOPHEN
     Indication: PAIN
     Dosage: 500.0MG EVERY 4 - 6 HOURS
     Route: 048
  25. COMPAZINE [Concomitant]
     Active Substance: PROCHLORPERAZINE MALEATE
     Indication: NAUSEA
     Dosage: 1.0DF EVERY 4 - 6 HOURS
     Route: 048
  26. AZD5363 [Suspect]
     Active Substance: INVESTIGATIONAL PRODUCT
     Indication: OVARIAN CANCER
     Dosage: 2 TABS
     Route: 048
  27. CALCIUM CARBONATE. [Concomitant]
     Active Substance: CALCIUM CARBONATE
     Route: 048
  28. ROXICODONE [Concomitant]
     Active Substance: OXYCODONE HYDROCHLORIDE
     Dosage: 5.0MG EVERY 4 - 6 HOURS
     Route: 048

REACTIONS (1)
  - Hypersensitivity [Unknown]

NARRATIVE: CASE EVENT DATE: 20170220
